FAERS Safety Report 6743112-X (Version None)
Quarter: 2010Q2

REPORT INFORMATION
  Report Type: 
  Country: None (occurrence: None)
  Receive Date: 20100527
  Receipt Date: 20100519
  Transmission Date: 20101027
  Serious: Yes (Other)
  Sender: FDA-Public Use
  Company Number: US-BAYER-200932725NA

PATIENT
  Age: 64 Year
  Sex: Male

DRUGS (13)
  1. NEXAVAR [Suspect]
     Indication: RENAL CANCER
     Dosage: TOTAL DAILY DOSE: 200 MG  UNIT DOSE: 200 MG
     Route: 048
     Dates: start: 20090829
  2. NEXAVAR [Suspect]
     Dosage: TOTAL DAILY DOSE: 400 MG  UNIT DOSE: 200 MG
     Route: 048
     Dates: start: 20090901
  3. NEXAVAR [Suspect]
     Dosage: TOTAL DAILY DOSE: 800 MG  UNIT DOSE: 200 MG
     Route: 048
     Dates: start: 20091114, end: 20091117
  4. NEXAVAR [Suspect]
     Route: 048
     Dates: end: 20100517
  5. METFORMIN HYDROCHLORIDE [Concomitant]
  6. GEMIFBOLO [Concomitant]
  7. ELAVIL [Concomitant]
  8. FOSINOPRIL SODIUM [Concomitant]
  9. LOPRESSOR [Concomitant]
  10. TYLENOL (CAPLET) [Concomitant]
  11. VITAMINS [Concomitant]
  12. LIPITOR [Concomitant]
  13. TRAMADOL HCL [Concomitant]

REACTIONS (3)
  - ABDOMINAL PAIN [None]
  - EPISTAXIS [None]
  - LIP SWELLING [None]
